FAERS Safety Report 6895006-7 (Version None)
Quarter: 2010Q3

REPORT INFORMATION
  Report Type: 
  Country: None (occurrence: None)
  Receive Date: 20100708
  Receipt Date: 20090813
  Transmission Date: 20110219
  Serious: Yes (Other)
  Sender: FDA-Public Use
  Company Number: 2009257160

PATIENT
  Age: 22 Year
  Sex: Male

DRUGS (2)
  1. CHANTIX [Suspect]
     Indication: SMOKING CESSATION THERAPY
     Dosage: 2X/DAY, EVERY DAY
     Dates: start: 20090703, end: 20090801
  2. LEXAPRO [Concomitant]

REACTIONS (2)
  - NIGHTMARE [None]
  - SUICIDAL IDEATION [None]
